FAERS Safety Report 7173474-3 (Version None)
Quarter: 2010Q4

REPORT INFORMATION
  Report Type: 
  Country: None (occurrence: None)
  Receive Date: 20101219
  Receipt Date: 20100301
  Transmission Date: 20110411
  Serious: No
  Sender: FDA-Public Use
  Company Number: US-AMGEN-KDL396277

PATIENT

DRUGS (1)
  1. ENBREL [Suspect]
     Indication: RHEUMATOID ARTHRITIS
     Dosage: 25 MG, 2 TIMES/WK
     Route: 058

REACTIONS (8)
  - INJECTION SITE HAEMATOMA [None]
  - INJECTION SITE PAIN [None]
  - NODULE ON EXTREMITY [None]
  - ONYCHOMYCOSIS [None]
  - RHEUMATOID ARTHRITIS [None]
  - SPONDYLITIS [None]
  - TEMPOROMANDIBULAR JOINT SYNDROME [None]
  - THERAPEUTIC RESPONSE DECREASED [None]
